FAERS Safety Report 6265676-5 (Version None)
Quarter: 2009Q3

REPORT INFORMATION
  Report Type: 
  Country: None (occurrence: None)
  Receive Date: 20090713
  Receipt Date: 20090706
  Transmission Date: 20100115
  Serious: Yes (Hospitalization)
  Sender: FDA-Public Use
  Company Number: ES-PFIZER INC-2009228033

PATIENT
  Age: 51 Year

DRUGS (1)
  1. TOVIAZ [Suspect]
     Indication: URINARY INCONTINENCE
     Dosage: 8 MG, UNK
     Route: 048
     Dates: start: 20090115, end: 20090116

REACTIONS (4)
  - ERYTHEMA [None]
  - FACE OEDEMA [None]
  - PRURITUS [None]
  - TONGUE OEDEMA [None]
